FAERS Safety Report 21212099 (Version 3)
Quarter: 2022Q4

REPORT INFORMATION
  Report Type: Spontaneous
  Country: US (occurrence: US)
  Receive Date: 20220815
  Receipt Date: 20221010
  Transmission Date: 20230112
  Serious: No
  Sender: FDA-Public Use
  Company Number: US-PFIZER INC-202201026178

PATIENT
  Sex: Female

DRUGS (1)
  1. PREMARIN [Suspect]
     Active Substance: ESTROGENS, CONJUGATED
     Indication: Urinary incontinence
     Dosage: UNK

REACTIONS (4)
  - Incorrect dose administered by device [Unknown]
  - Device issue [Unknown]
  - Off label use [Unknown]
  - Drug effective for unapproved indication [Unknown]
